FAERS Safety Report 7573383-1 (Version None)
Quarter: 2011Q2

REPORT INFORMATION
  Report Type: 
  Country: None (occurrence: None)
  Receive Date: 20110627
  Receipt Date: 20110617
  Transmission Date: 20111010
  Serious: Yes (Other)
  Sender: FDA-Public Use
  Company Number: PHHY2011DE54058

PATIENT
  Age: 74 Year
  Sex: Female

DRUGS (3)
  1. IBANDRONATE SODIUM [Suspect]
     Dosage: UNK
     Dates: start: 20060213, end: 20060818
  2. CHEMOTHERAPEUTICS NOS [Concomitant]
  3. ZOLEDRONIC ACID [Suspect]
     Dosage: UNK
     Route: 042
     Dates: start: 20040101, end: 20060213

REACTIONS (1)
  - OSTEONECROSIS OF JAW [None]
